FAERS Safety Report 4823605-2 (Version None)
Quarter: 2005Q4

REPORT INFORMATION
  Report Type: 
  Country: None (occurrence: None)
  Receive Date: 20051109
  Receipt Date: 20051031
  Transmission Date: 20060501
  Serious: Yes (Hospitalization)
  Sender: FDA-Public Use
  Company Number: US-JNJFOC-20051100157

PATIENT
  Age: 14 Month
  Sex: Male
  Weight: 15.5 kg

DRUGS (2)
  1. TYLENOL (CAPLET) [Suspect]
     Route: 048
  2. TYLENOL (CAPLET) [Suspect]
     Indication: DRUG USE FOR UNKNOWN INDICATION
     Dosage: 7.5 ML ORAL; }24HR {= 1 WEEK
     Route: 048

REACTIONS (7)
  - ACIDOSIS [None]
  - COAGULOPATHY [None]
  - HYPOGLYCAEMIA [None]
  - MEDICATION ERROR [None]
  - RENAL FAILURE [None]
  - UNEVALUABLE EVENT [None]
  - VERTIGO [None]
